FAERS Safety Report 10011379 (Version 2)
Quarter: 2014Q2

REPORT INFORMATION
  Report Type: Spontaneous
  Country: US (occurrence: US)
  Receive Date: 20140314
  Receipt Date: 20140616
  Transmission Date: 20141212
  Serious: Yes (Hospitalization, Other)
  Sender: FDA-Public Use
  Company Number: US-SANOFI-AVENTIS-2013SA094288

PATIENT
  Age: 38 Year
  Sex: Male

DRUGS (3)
  1. CEREZYME [Suspect]
     Indication: GAUCHER^S DISEASE
     Dosage: FREQUENCY:EVERY 2 WEEKS
     Route: 042
     Dates: start: 20110808
  2. LAMICTAL [Concomitant]
  3. LAMOTRIGINE [Concomitant]

REACTIONS (8)
  - Hernia [Unknown]
  - Staphylococcal infection [Unknown]
  - Mania [Unknown]
  - Nervous system disorder [Unknown]
  - Migraine [Unknown]
  - Insomnia [Not Recovered/Not Resolved]
  - Fall [Unknown]
  - Convulsion [Unknown]
